FAERS Safety Report 6691813-4 (Version None)
Quarter: 2010Q2

REPORT INFORMATION
  Report Type: 
  Country: None (occurrence: None)
  Receive Date: 20100422
  Receipt Date: 20090903
  Transmission Date: 20101027
  Serious: No
  Sender: FDA-Public Use
  Company Number: US-ASTRAZENECA-2009SE08944

PATIENT
  Age: 71 Year
  Sex: Male
  Weight: 106.6 kg

DRUGS (2)
  1. TOPROL-XL [Suspect]
     Route: 048
     Dates: start: 20030101, end: 20040101
  2. TOPROL-XL [Suspect]
     Route: 048
     Dates: start: 20040101

REACTIONS (1)
  - ASTHMA [None]
